FAERS Safety Report 7151416-4 (Version None)
Quarter: 2010Q4

REPORT INFORMATION
  Report Type: 
  Country: None (occurrence: None)
  Receive Date: 20101210
  Receipt Date: 20101202
  Transmission Date: 20110411
  Serious: Yes (Disabling, Other)
  Sender: FDA-Public Use
  Company Number: US-MERCK-0901USA03857

PATIENT
  Age: 58 Year
  Sex: Female
  Weight: 66 kg

DRUGS (1)
  1. FOSAMAX [Suspect]
     Indication: OSTEOPENIA
     Route: 048
     Dates: start: 20010101, end: 20070701

REACTIONS (32)
  - ABSCESS [None]
  - ALVEOLAR OSTEITIS [None]
  - ARTHRALGIA [None]
  - BONE DENSITY DECREASED [None]
  - BONE EROSION [None]
  - COLONIC POLYP [None]
  - DENTAL CARIES [None]
  - DENTAL FISTULA [None]
  - EAR PAIN [None]
  - EXPOSURE TO COMMUNICABLE DISEASE [None]
  - FALL [None]
  - FRACTURE [None]
  - GASTROINTESTINAL DISORDER [None]
  - HAEMORRHOIDS [None]
  - HYPERKERATOSIS [None]
  - INFLAMMATION [None]
  - JAW DISORDER [None]
  - NECK PAIN [None]
  - OSTEOMYELITIS [None]
  - OSTEONECROSIS [None]
  - OSTEONECROSIS OF JAW [None]
  - PALPITATIONS [None]
  - PERIODONTITIS [None]
  - POLYURIA [None]
  - RADIUS FRACTURE [None]
  - SENSITIVITY OF TEETH [None]
  - TONSILLAR DISORDER [None]
  - TOOTH FRACTURE [None]
  - TOOTHACHE [None]
  - UPPER LIMB FRACTURE [None]
  - VARICOSE VEIN [None]
  - WRIST FRACTURE [None]
